FAERS Safety Report 8440321-9 (Version None)
Quarter: 2012Q2

REPORT INFORMATION
  Report Type: 
  Country: None (occurrence: None)
  Receive Date: 20120615
  Receipt Date: 20120601
  Transmission Date: 20120825
  Serious: Yes (Other)
  Sender: FDA-Public Use
  Company Number: CHPA2012US011736

PATIENT
  Age: 59 Year
  Sex: Female

DRUGS (2)
  1. EXCEDRIN EXTRA STRENGTH TABLETS [Suspect]
     Dosage: 1 OR 2 DF, DAILY
     Route: 048
  2. EXCEDRIN EXTRA STRENGTH TABLETS [Suspect]
     Indication: HEADACHE
     Dosage: UP TO 6 DF, PER DAY
     Route: 048

REACTIONS (4)
  - NERVOUS SYSTEM DISORDER [None]
  - HEADACHE [None]
  - SCAR [None]
  - THERAPEUTIC RESPONSE UNEXPECTED [None]
